FAERS Safety Report 5378808-8 (Version None)
Quarter: 2007Q3

REPORT INFORMATION
  Report Type: 
  Country: None (occurrence: None)
  Receive Date: 20070705
  Receipt Date: 20070622
  Transmission Date: 20080115
  Serious: Yes (Hospitalization)
  Sender: FDA-Public Use
  Company Number: US-AMGEN-US230720

PATIENT
  Sex: Male

DRUGS (1)
  1. PROCRIT [Suspect]
     Indication: DIALYSIS
     Dates: start: 20050101, end: 20050101

REACTIONS (3)
  - GASTRITIS [None]
  - HYPERSENSITIVITY [None]
  - VOMITING [None]
